FAERS Safety Report 8193882-1 (Version None)
Quarter: 2012Q1

REPORT INFORMATION
  Report Type: 
  Country: None (occurrence: None)
  Receive Date: 20120308
  Receipt Date: 20120223
  Transmission Date: 20120608
  Serious: Yes (Hospitalization)
  Sender: FDA-Public Use
  Company Number: FR-SANOFI-AVENTIS-2012SA012051

PATIENT
  Age: 83 Year
  Sex: Male

DRUGS (9)
  1. AMLODIPINE BESYLATE [Suspect]
     Dosage: STRENGTH; 10 MG
     Route: 048
  2. ALFUZOSIN HCL [Suspect]
     Dosage: STRENGTH; 2.5 MG
     Route: 048
  3. LASIX [Suspect]
     Dosage: STRENGTH; 40 %G
     Route: 048
  4. ASPIRIN [Suspect]
     Dosage: STRENGTH; 75%MG
     Route: 048
  5. PRAVASTATIN [Suspect]
     Dosage: STRENGTH; 40 MG
     Route: 048
  6. PREVISCAN [Suspect]
     Dosage: STRENGTH; 20 MG
     Route: 048
  7. NEXIUM [Suspect]
     Dosage: STRENGTH; 20 MG
     Route: 048
  8. ALLOPURINOL [Suspect]
     Dosage: STRENGTH; 100 MG
     Route: 048
  9. PERINDOPRIL ERBUMINE [Suspect]
     Dosage: STRENGTH; 2.5 MG
     Route: 048

REACTIONS (1)
  - VASCULITIS [None]
